FAERS Safety Report 7962421-X (Version None)
Quarter: 2011Q4

REPORT INFORMATION
  Report Type: 
  Country: None (occurrence: None)
  Receive Date: 20111207
  Receipt Date: 20111130
  Transmission Date: 20120403
  Serious: Yes (Other)
  Sender: FDA-Public Use
  Company Number: AU-GLAXOSMITHKLINE-B0765079A

PATIENT
  Sex: Female

DRUGS (6)
  1. VITAMIN B-12 [Concomitant]
     Dosage: 1TAB PER DAY
     Dates: start: 20111001
  2. UNKNOWN DRUG [Concomitant]
     Dosage: 2TAB PER DAY
     Dates: start: 20091201
  3. NICOTINE [Suspect]
     Indication: EX-TOBACCO USER
     Route: 062
     Dates: start: 20111110, end: 20111112
  4. LEVELIN [Concomitant]
     Indication: CONTRACEPTION
     Dosage: 2TAB PER DAY
     Dates: start: 20091201
  5. NICOTINE [Suspect]
     Indication: EX-TOBACCO USER
     Dosage: 1PAT PER DAY
     Route: 062
     Dates: start: 20110301, end: 20110314
  6. UNKNOWN DRUG [Concomitant]
     Indication: DEPRESSION
     Dosage: 1TAB PER DAY
     Dates: start: 20101201

REACTIONS (6)
  - DIZZINESS [None]
  - HEART VALVE INCOMPETENCE [None]
  - HYPERHIDROSIS [None]
  - PALPITATIONS [None]
  - VOMITING [None]
  - CARDIAC MURMUR [None]
